FAERS Safety Report 9937945 (Version 2)
Quarter: 2014Q1

REPORT INFORMATION
  Report Type: Spontaneous
  Country: US (occurrence: US)
  Receive Date: 20140303
  Receipt Date: 20140312
  Transmission Date: 20141002
  Serious: No
  Sender: FDA-Public Use
  Company Number: US-BIOGENIDEC-2014BI017035

PATIENT
  Age: 45 Year
  Sex: Female
  Weight: 58 kg

DRUGS (14)
  1. TECFIDERA [Suspect]
     Indication: MULTIPLE SCLEROSIS
     Route: 048
     Dates: start: 20140208, end: 20140214
  2. TECFIDERA [Suspect]
     Indication: MULTIPLE SCLEROSIS
     Route: 048
     Dates: start: 20140211, end: 20140217
  3. TECFIDERA [Suspect]
     Indication: MULTIPLE SCLEROSIS
     Route: 048
     Dates: start: 20140215
  4. TECFIDERA [Suspect]
     Indication: MULTIPLE SCLEROSIS
     Route: 048
     Dates: start: 20140218
  5. TECFIDERA [Suspect]
     Indication: MULTIPLE SCLEROSIS
     Route: 048
     Dates: start: 201402
  6. TECFIDERA [Suspect]
     Indication: MULTIPLE SCLEROSIS
  7. OXYCARBAZEPINE [Concomitant]
  8. CITALOPRAM HBR [Concomitant]
  9. LIOTHYRONINE [Concomitant]
  10. OMEPRAZOLE DR [Concomitant]
  11. VITAMIN B12 [Concomitant]
  12. VITAMIN D [Concomitant]
  13. ADDERALL XR [Concomitant]
  14. LEVOXYL [Concomitant]

REACTIONS (13)
  - Overdose [Unknown]
  - Dizziness [Unknown]
  - Motion sickness [Not Recovered/Not Resolved]
  - Flushing [Unknown]
  - Nausea [Not Recovered/Not Resolved]
  - Vomiting [Not Recovered/Not Resolved]
  - Abdominal pain upper [Not Recovered/Not Resolved]
  - Dyspepsia [Not Recovered/Not Resolved]
  - Diarrhoea [Not Recovered/Not Resolved]
  - Nasopharyngitis [Unknown]
  - Laryngitis [Unknown]
  - Headache [Unknown]
  - Extra dose administered [Unknown]
